FAERS Safety Report 21609539 (Version 1)
Quarter: 2022Q4

REPORT INFORMATION
  Report Type: Spontaneous
  Country: JP (occurrence: None)
  Receive Date: 20221117
  Receipt Date: 20221117
  Transmission Date: 20230113
  Serious: Yes (Other)
  Sender: FDA-Public Use
  Company Number: 2022A374859

PATIENT
  Age: 47 Year
  Sex: Female

DRUGS (4)
  1. LYNPARZA [Suspect]
     Active Substance: OLAPARIB
     Indication: Breast cancer
     Dosage: DOSE UNKNOWN
     Route: 048
  2. OLANZAPINE [Concomitant]
     Active Substance: OLANZAPINE
     Indication: Antiemetic supportive care
     Route: 065
  3. NAUZELIN [Concomitant]
     Active Substance: DOMPERIDONE
     Indication: Antiemetic supportive care
     Route: 065
  4. NOVAMIN [Concomitant]
     Indication: Antiemetic supportive care
     Route: 065

REACTIONS (2)
  - Malignant neoplasm progression [Unknown]
  - Nausea [Unknown]
